FAERS Safety Report 8837147 (Version 4)
Quarter: 2014Q2

REPORT INFORMATION
  Report Type: Report from Study
  Country: DE (occurrence: DE)
  Receive Date: 20121011
  Receipt Date: 20140502
  Transmission Date: 20141212
  Serious: Yes (Hospitalization)
  Sender: FDA-Public Use
  Company Number: DE-ROCHE-1144466

PATIENT
  Age: 77 Year
  Sex: Male
  Weight: 58 kg

DRUGS (2)
  1. RITUXIMAB [Suspect]
     Indication: CHRONIC MYELOID LEUKAEMIA
     Route: 042
     Dates: start: 20101213, end: 20110207
  2. RITUXIMAB [Suspect]
     Route: 042
     Dates: end: 20130415

REACTIONS (4)
  - Leukocytosis [Unknown]
  - Bacterial infection [Unknown]
  - Inguinal hernia [Recovered/Resolved]
  - Pneumonia [Recovered/Resolved]
